FAERS Safety Report 14678440 (Version 1)
Quarter: 2018Q1

REPORT INFORMATION
  Report Type: Spontaneous
  Country: FR (occurrence: FR)
  Receive Date: 20180326
  Receipt Date: 20180326
  Transmission Date: 20180509
  Serious: Yes (Other)
  Sender: FDA-Public Use
  Company Number: FR-MERCK KGAA-2044489

PATIENT
  Age: 62 Year
  Sex: Female

DRUGS (1)
  1. NOVOTHYROX [Suspect]
     Active Substance: LEVOTHYROXINE SODIUM
     Indication: THYROID DISORDER
     Dates: start: 201707

REACTIONS (17)
  - Dizziness [Recovered/Resolved]
  - Arthralgia [Recovered/Resolved]
  - Decreased interest [None]
  - Insomnia [Recovered/Resolved]
  - Nervousness [None]
  - Weight decreased [Recovered/Resolved]
  - Anxiety [Recovered/Resolved]
  - Negative thoughts [None]
  - Fatigue [None]
  - Somnolence [None]
  - Blood thyroid stimulating hormone abnormal [Recovered/Resolved]
  - Depressed mood [None]
  - Major depression [None]
  - Gait disturbance [None]
  - Headache [Recovered/Resolved]
  - Suicidal ideation [None]
  - Asthenia [Recovered/Resolved]

NARRATIVE: CASE EVENT DATE: 2017
